FAERS Safety Report 25795119 (Version 2)
Quarter: 2025Q4

REPORT INFORMATION
  Report Type: Spontaneous
  Country: US (occurrence: US)
  Receive Date: 20250912
  Receipt Date: 20251110
  Transmission Date: 20260118
  Serious: No
  Sender: BIOGEN
  Company Number: US-BIOGEN-2025BI01323193

PATIENT
  Age: 34 Year
  Sex: Female

DRUGS (2)
  1. TYSABRI [Suspect]
     Active Substance: NATALIZUMAB
     Indication: Multiple sclerosis
     Dates: start: 20200818, end: 20231010
  2. TYSABRI [Suspect]
     Active Substance: NATALIZUMAB
     Dates: start: 20240906, end: 20241007

REACTIONS (1)
  - Multiple sclerosis [Unknown]
